FAERS Safety Report 5711432-3 (Version None)
Quarter: 2008Q2

REPORT INFORMATION
  Report Type: 
  Country: None (occurrence: None)
  Receive Date: 20080415
  Receipt Date: 20080331
  Transmission Date: 20081010
  Serious: Yes (Other)
  Sender: FDA-Public Use
  Company Number: 100#03#2008#-01802

PATIENT
  Age: 58 Year
  Sex: Male

DRUGS (5)
  1. CITALOPRAM HYDROBROMIDE [Suspect]
     Indication: ANXIETY
     Dosage: 20 MG, ORAL
     Route: 048
     Dates: start: 20080214, end: 20080218
  2. ACETYLSALICYLIC ACID SRT [Concomitant]
  3. GLICLAZIDE (GLICIAZIDE) [Concomitant]
  4. LISINOPRIL [Concomitant]
  5. SIMVASTATIN [Concomitant]

REACTIONS (1)
  - MUSCLE SPASMS [None]
